FAERS Safety Report 6671348-5 (Version None)
Quarter: 2010Q2

REPORT INFORMATION
  Report Type: 
  Country: None (occurrence: None)
  Receive Date: 20100407
  Receipt Date: 20100405
  Transmission Date: 20101027
  Serious: Yes (Hospitalization)
  Sender: FDA-Public Use
  Company Number: A0804447A

PATIENT
  Age: 55 Year
  Sex: Female

DRUGS (1)
  1. AVANDIA [Suspect]
     Dosage: 8MG PER DAY
     Route: 048
     Dates: start: 19990101, end: 20070730

REACTIONS (7)
  - GAIT DISTURBANCE [None]
  - HEARING IMPAIRED [None]
  - ISCHAEMIC STROKE [None]
  - MALAISE [None]
  - MYOCARDIAL INFARCTION [None]
  - SPEECH DISORDER [None]
  - VISUAL ACUITY REDUCED [None]
